FAERS Safety Report 7379753-9 (Version None)
Quarter: 2011Q1

REPORT INFORMATION
  Report Type: 
  Country: None (occurrence: None)
  Receive Date: 20110329
  Receipt Date: 20110314
  Transmission Date: 20110831
  Serious: Yes (Other)
  Sender: FDA-Public Use
  Company Number: JP-RANBAXY-2011RR-43117

PATIENT
  Age: 70 Year
  Sex: Female

DRUGS (4)
  1. MEQUITAZINE [Concomitant]
     Indication: PRODUCT USED FOR UNKNOWN INDICATION
     Dosage: UNK
     Route: 065
     Dates: start: 20110127, end: 20110308
  2. LORATADINE [Concomitant]
     Indication: PRODUCT USED FOR UNKNOWN INDICATION
     Dosage: UNK
     Route: 065
     Dates: start: 20110127, end: 20110308
  3. FENOFIBRATE [Suspect]
     Indication: DYSLIPIDAEMIA
     Dosage: 200 MG, UNK
     Route: 048
     Dates: start: 20110114, end: 20110308
  4. VALSARTAN [Concomitant]
     Indication: PRODUCT USED FOR UNKNOWN INDICATION
     Dosage: UNK
     Route: 065
     Dates: start: 20081225

REACTIONS (1)
  - JAUNDICE [None]
